FAERS Safety Report 10245938 (Version 1)
Quarter: 2014Q2

REPORT INFORMATION
  Report Type: Spontaneous
  Country: US (occurrence: None)
  Receive Date: 20140616
  Receipt Date: 20140616
  Transmission Date: 20141212
  Serious: Yes (Hospitalization)
  Sender: FDA-Public Use
  Company Number: None

PATIENT
  Age: 61 Year
  Sex: Female

DRUGS (4)
  1. PROLIA [Suspect]
     Indication: PRODUCT USED FOR UNKNOWN INDICATION
     Dosage: EVERY 6 MONTHS, INJECTION I HAVE TAKEN 2 SHOTS?
     Dates: start: 201307, end: 20140203
  2. PREVACID [Concomitant]
  3. VITAMIN D [Concomitant]
  4. CALTRATE TAB [Concomitant]

REACTIONS (19)
  - Upper respiratory tract infection [None]
  - Lacrimation increased [None]
  - Cough [None]
  - Chest pain [None]
  - Pain in extremity [None]
  - Asthenia [None]
  - Bone pain [None]
  - Malaise [None]
  - Lower respiratory tract infection [None]
  - Wheezing [None]
  - Dyspnoea [None]
  - Asthenia [None]
  - Viral infection [None]
  - Pyrexia [None]
  - Pain [None]
  - Ear pain [None]
  - Asthma [None]
  - Fatigue [None]
  - Immune system disorder [None]
